FAERS Safety Report 5492384-0 (Version None)
Quarter: 2007Q4

REPORT INFORMATION
  Report Type: 
  Country: None (occurrence: None)
  Receive Date: 20071015
  Receipt Date: 20070716
  Transmission Date: 20080405
  Serious: No
  Sender: FDA-Public Use
  Company Number: 2007SP002555

PATIENT
  Age: 71 Year
  Sex: Male
  Weight: 89.3586 kg

DRUGS (4)
  1. LUNESTA [Suspect]
     Dosage: ;ORAL
     Route: 048
     Dates: start: 20070101, end: 20070101
  2. FLONASE [Concomitant]
  3. AMBIEN [Concomitant]
  4. MELATONIN [Concomitant]

REACTIONS (4)
  - ABNORMAL DREAMS [None]
  - DYSGEUSIA [None]
  - FEELING ABNORMAL [None]
  - MIDDLE INSOMNIA [None]
